FAERS Safety Report 9221668 (Version 2)
Quarter: 2013Q2

REPORT INFORMATION
  Report Type: Spontaneous
  Country: IT (occurrence: IT)
  Receive Date: 20130410
  Receipt Date: 20130510
  Transmission Date: 20140414
  Serious: Yes (Hospitalization, Other)
  Sender: FDA-Public Use
  Company Number: IT-JNJFOC-20130400780

PATIENT
  Age: 32 Year
  Sex: Male

DRUGS (2)
  1. INVEGA [Suspect]
     Indication: SCHIZOPHRENIA
     Route: 048
     Dates: start: 20130329, end: 20130329
  2. INVEGA [Suspect]
     Indication: SCHIZOPHRENIA
     Dosage: 27 TABLETS OF STRENGTH 9 MG
     Route: 048
     Dates: start: 20121207

REACTIONS (4)
  - Intentional overdose [Recovered/Resolved]
  - Self injurious behaviour [Unknown]
  - Depressed mood [Unknown]
  - Anxiety [Unknown]
